FAERS Safety Report 8096383-4 (Version None)
Quarter: 2012Q1

REPORT INFORMATION
  Report Type: 
  Country: None (occurrence: None)
  Receive Date: 20120129
  Receipt Date: 20111104
  Transmission Date: 20120608
  Serious: No
  Sender: FDA-Public Use
  Company Number: US-ABBOTT-11P-163-0872767-00

PATIENT
  Sex: Female
  Weight: 89.892 kg

DRUGS (8)
  1. ZOLOFT [Concomitant]
     Indication: DEPRESSION
  2. TACLONEX [Concomitant]
     Indication: PSORIASIS
  3. VALTREX [Concomitant]
     Indication: HERPES VIRUS INFECTION
  4. HUMIRA [Suspect]
     Indication: SJOGREN'S SYNDROME
     Dosage: PEN
     Route: 058
     Dates: start: 20101101, end: 20101201
  5. LIPITOR [Concomitant]
     Indication: BLOOD CHOLESTEROL INCREASED
  6. FLAX SEED OIL [Concomitant]
     Indication: PRODUCT USED FOR UNKNOWN INDICATION
  7. HUMIRA [Suspect]
     Dosage: PFS
     Route: 058
     Dates: start: 20101201, end: 20111004
  8. SYNTHROID [Concomitant]
     Indication: HYPOTHYROIDISM

REACTIONS (4)
  - PAIN IN EXTREMITY [None]
  - CHEST PAIN [None]
  - LUPUS-LIKE SYNDROME [None]
  - HERPES SIMPLEX [None]
